FAERS Safety Report 9181775 (Version 2)
Quarter: 2013Q2

REPORT INFORMATION
  Report Type: Spontaneous
  Country: US (occurrence: US)
  Receive Date: 20130322
  Receipt Date: 20130403
  Transmission Date: 20140414
  Serious: Yes (Other)
  Sender: FDA-Public Use
  Company Number: US-PFIZER INC-2013091033

PATIENT
  Sex: Male

DRUGS (3)
  1. ACCUPRIL [Suspect]
     Dosage: 10 MG, UNK
  2. ACCUPRIL [Suspect]
     Dosage: 20 MG, UNK
  3. ACCUPRIL [Suspect]
     Dosage: 40 MG, UNK

REACTIONS (2)
  - Cardiac disorder [Unknown]
  - Thyroid disorder [Unknown]
